FAERS Safety Report 4368754-0 (Version None)
Quarter: 2004Q2

REPORT INFORMATION
  Report Type: 
  Country: None (occurrence: None)
  Receive Date: 20040528
  Receipt Date: 20040517
  Transmission Date: 20050107
  Serious: Yes (Life-Threatening)
  Sender: FDA-Public Use
  Company Number: 2004030720

PATIENT
  Age: 93 Year
  Sex: Female
  Weight: 37 kg

DRUGS (5)
  1. SULPERAZON (CEFOPERAZONE, SULBACTAM) [Suspect]
     Indication: CHOLECYSTITIS
     Dosage: 2 GRAM (UNK, D), INTRVENOUS
     Route: 042
     Dates: start: 20040422, end: 20040425
  2. AMINOFLUID             (AMINO ACIDS NOS, ELECTROLYTES NOS, GLUCOSE) [Concomitant]
  3. SOLITA T (ELECTROLYTES NOS) [Concomitant]
  4. POTACOL-R (CALCIUM CHLORIDE ANHYDROUS, MALTOSE, POTASSIUM CHLOIRDE, SO [Concomitant]
  5. GLUCOSE (GLUCOSE) [Concomitant]

REACTIONS (1)
  - PLATELET COUNT DECREASED [None]
